FAERS Safety Report 11442653 (Version 5)
Quarter: 2015Q4

REPORT INFORMATION
  Report Type: Spontaneous
  Country: US (occurrence: US)
  Receive Date: 20150831
  Receipt Date: 20151013
  Transmission Date: 20160304
  Serious: Yes (Hospitalization, Other)
  Sender: FDA-Public Use
  Company Number: US-GLAXOSMITHKLINE-US2015GSK123779

PATIENT
  Sex: Male

DRUGS (2)
  1. ROPINIROLE. [Suspect]
     Active Substance: ROPINIROLE
     Dosage: 4 MG, TID
  2. ROPINIROLE. [Suspect]
     Active Substance: ROPINIROLE
     Dosage: 16 MG, QD

REACTIONS (6)
  - Accidental overdose [Unknown]
  - Inappropriate schedule of drug administration [Unknown]
  - Cardiac fibrillation [Unknown]
  - Heart rate irregular [Unknown]
  - Cardiac disorder [Unknown]
  - Hospitalisation [Unknown]

NARRATIVE: CASE EVENT DATE: 20150819
